FAERS Safety Report 16422571 (Version 2)
Quarter: 2019Q2

REPORT INFORMATION
  Report Type: Spontaneous
  Country: ES (occurrence: ES)
  Receive Date: 20190612
  Receipt Date: 20190618
  Transmission Date: 20190711
  Serious: Yes (Other)
  Sender: FDA-Public Use
  Company Number: ES-PFIZER INC-2019236838

PATIENT
  Age: 94 Year
  Sex: Male

DRUGS (2)
  1. COLCHICINE. [Interacting]
     Active Substance: COLCHICINE
     Indication: GOUTY ARTHRITIS
     Dosage: 0.5 MG, DAILY
  2. ATORVASTATIN CALCIUM. [Suspect]
     Active Substance: ATORVASTATIN CALCIUM
     Indication: DYSLIPIDAEMIA
     Dosage: 40 MG, DAILY (ATORVASTATIN FOR FIVE YEARS)

REACTIONS (4)
  - Toxicity to various agents [Recovering/Resolving]
  - Myopathy toxic [Recovering/Resolving]
  - Renal impairment [Recovering/Resolving]
  - Drug interaction [Unknown]
